FAERS Safety Report 8295874-0 (Version None)
Quarter: 2012Q2

REPORT INFORMATION
  Report Type: 
  Country: None (occurrence: None)
  Receive Date: 20120418
  Receipt Date: 20120411
  Transmission Date: 20120825
  Serious: Yes (Other)
  Sender: FDA-Public Use
  Company Number: US-JNJFOC-20120404974

PATIENT
  Sex: Female
  Weight: 72.58 kg

DRUGS (2)
  1. ORAL CONTRACEPTIVE [Concomitant]
     Indication: CONTRACEPTION
     Route: 048
     Dates: start: 19990101
  2. STELARA [Suspect]
     Indication: PSORIASIS
     Dosage: 3RD INJECTION ONE WEEK PRIOR TO DATE OF THIS REPORT
     Route: 058

REACTIONS (1)
  - PAPILLOMA VIRAL INFECTION [None]
